FAERS Safety Report 11872362 (Version 2)
Quarter: 2015Q4

REPORT INFORMATION
  Report Type: Report from Study
  Country: JP (occurrence: JP)
  Receive Date: 20151228
  Receipt Date: 20151230
  Transmission Date: 20160305
  Serious: Yes (Death)
  Sender: FDA-Public Use
  Company Number: JP-EISAI MEDICAL RESEARCH-EC-2015-013125

PATIENT
  Age: 75 Year
  Sex: Female

DRUGS (24)
  1. LENVIMA [Suspect]
     Active Substance: LENVATINIB
     Indication: POORLY DIFFERENTIATED THYROID CARCINOMA
     Route: 048
     Dates: start: 20150626, end: 20150706
  2. LENVIMA [Suspect]
     Active Substance: LENVATINIB
     Route: 048
     Dates: start: 20151002, end: 20151016
  3. AIMIX [Concomitant]
     Active Substance: AMLODIPINE BESYLATE\IRBESARTAN
  4. MYSLEE [Concomitant]
     Active Substance: ZOLPIDEM TARTRATE
  5. KERATINAMIN [Concomitant]
     Active Substance: UREA
  6. BLOPRESS [Concomitant]
     Active Substance: CANDESARTAN CILEXETIL
  7. CALONAL [Concomitant]
     Active Substance: ACETAMINOPHEN
  8. JUVELA NICOTINATE [Concomitant]
     Active Substance: TOCOPHERYL NICOTINATE, D-.ALPHA.
  9. RABEPRAZOLE NA [Concomitant]
     Active Substance: RABEPRAZOLE SODIUM
  10. DEPAS [Concomitant]
     Active Substance: ETIZOLAM
  11. LENVIMA [Suspect]
     Active Substance: LENVATINIB
     Route: 048
     Dates: start: 20150707, end: 20150708
  12. LENVIMA [Suspect]
     Active Substance: LENVATINIB
     Route: 048
     Dates: start: 20150731, end: 20150814
  13. LIPITOR [Concomitant]
     Active Substance: ATORVASTATIN CALCIUM
  14. NOVAMIN [Concomitant]
     Active Substance: PROCHLORPERAZINE MALEATE
  15. CRAVIT [Concomitant]
     Active Substance: LEVOFLOXACIN
  16. LENVIMA [Suspect]
     Active Substance: LENVATINIB
     Route: 048
     Dates: start: 20150822, end: 20150828
  17. AMLODIPINE [Concomitant]
     Active Substance: AMLODIPINE BESYLATE
  18. THYRADIN [Concomitant]
     Active Substance: LEVOTHYROXINE
  19. LOPERAMIDE [Concomitant]
     Active Substance: LOPERAMIDE
  20. LENVIMA [Suspect]
     Active Substance: LENVATINIB
     Route: 048
     Dates: start: 20151204, end: 20151217
  21. SEPAMIT-R [Concomitant]
     Active Substance: NIFEDIPINE
  22. LENVIMA [Suspect]
     Active Substance: LENVATINIB
     Route: 048
     Dates: start: 20150918, end: 20150926
  23. LENVIMA [Suspect]
     Active Substance: LENVATINIB
     Route: 048
     Dates: start: 20151030, end: 20151121
  24. ALCADOL [Concomitant]

REACTIONS (1)
  - Aortic dissection [Fatal]

NARRATIVE: CASE EVENT DATE: 20151217
